FAERS Safety Report 8044745-3 (Version None)
Quarter: 2012Q1

REPORT INFORMATION
  Report Type: 
  Country: None (occurrence: None)
  Receive Date: 20120113
  Receipt Date: 20120106
  Transmission Date: 20120608
  Serious: Yes (Other)
  Sender: FDA-Public Use
  Company Number: US-BAYER-2010-006263

PATIENT
  Age: 23 Year
  Sex: Female
  Weight: 97.506 kg

DRUGS (10)
  1. ALLEGRA [Concomitant]
     Route: 048
  2. FLUOXETINE [Concomitant]
     Route: 048
  3. ACIPHEX [Concomitant]
     Route: 048
  4. IMODIUM [Concomitant]
     Route: 048
  5. PATANOL [Concomitant]
  6. YASMIN [Suspect]
     Dosage: UNK
     Dates: start: 20030101, end: 20050101
  7. TAGAMET [Concomitant]
     Route: 048
  8. IBUPROFEN [Concomitant]
     Route: 048
  9. RHINOCORT [Concomitant]
     Route: 045
  10. ORASEPT [Concomitant]
     Route: 048

REACTIONS (8)
  - ANXIETY [None]
  - EMOTIONAL DISTRESS [None]
  - PAIN [None]
  - FEAR [None]
  - CHOLECYSTITIS CHRONIC [None]
  - ABDOMINAL PAIN [None]
  - CHOLELITHIASIS [None]
  - DISCOMFORT [None]
